FAERS Safety Report 6921575-4 (Version None)
Quarter: 2010Q3

REPORT INFORMATION
  Report Type: 
  Country: None (occurrence: None)
  Receive Date: 20100812
  Receipt Date: 20100708
  Transmission Date: 20110219
  Serious: No
  Sender: FDA-Public Use
  Company Number: US-BAYER-201027879NA

PATIENT
  Sex: Male
  Weight: 91 kg

DRUGS (1)
  1. ULTRAVIST (PHARMACY BULK) [Suspect]
     Indication: PERIORBITAL CELLULITIS
     Dosage: AS USED: 100 ML  UNIT DOSE: 500 ML
     Route: 042
     Dates: start: 20100708, end: 20100708

REACTIONS (2)
  - PRURITUS [None]
  - RASH ERYTHEMATOUS [None]
